FAERS Safety Report 17301496 (Version 2)
Quarter: 2020Q2

REPORT INFORMATION
  Report Type: Spontaneous
  Country: GB (occurrence: GB)
  Receive Date: 20200122
  Receipt Date: 20200413
  Transmission Date: 20200713
  Serious: Yes (Other)
  Sender: FDA-Public Use
  Company Number: GB-GILEAD-2020-0445424

PATIENT
  Age: 74 Year
  Sex: Male

DRUGS (20)
  1. FAMOTIDINE. [Concomitant]
     Active Substance: FAMOTIDINE
  2. AMILORIDE HYDROCHLORIDE;FUROSEMIDE [Concomitant]
  3. RANITIDINE. [Concomitant]
     Active Substance: RANITIDINE
  4. ATORVASTATIN [Concomitant]
     Active Substance: ATORVASTATIN
  5. MAGNESIUM [Concomitant]
     Active Substance: MAGNESIUM
  6. CALCIUM CARBONATE W/VITAMIN D [CALCIUM CARBONATE;COLECALCIFEROL] [Concomitant]
     Active Substance: CALCIUM CARBONATE\CHOLECALCIFEROL
  7. BRILIQUE [Concomitant]
     Active Substance: TICAGRELOR
  8. FINASTERIDE. [Concomitant]
     Active Substance: FINASTERIDE
  9. TICAGRELOR. [Concomitant]
     Active Substance: TICAGRELOR
  10. CINNARIZINE [Concomitant]
     Active Substance: CINNARIZINE
  11. TRAMADOL. [Concomitant]
     Active Substance: TRAMADOL
  12. ACETYLSALICYLIC ACID;ASCORBIC ACID [Concomitant]
     Active Substance: ASCORBIC ACID\ASPIRIN
  13. RANEXA [Suspect]
     Active Substance: RANOLAZINE
     Indication: ANGINA PECTORIS
     Dosage: 375 MG, BID
     Route: 065
     Dates: start: 20191210, end: 20200106
  14. RAMIPRIL. [Concomitant]
     Active Substance: RAMIPRIL
  15. TAMULOSIN [Concomitant]
     Active Substance: TAMSULOSIN
  16. FRUMIL [Concomitant]
     Active Substance: AMILORIDE HYDROCHLORIDE\FUROSEMIDE
  17. ACEBUTOLOL [Concomitant]
     Active Substance: ACEBUTOLOL
  18. METFORMIN [Concomitant]
     Active Substance: METFORMIN HYDROCHLORIDE
  19. MONTELUKAST [Concomitant]
     Active Substance: MONTELUKAST SODIUM
  20. ADCAL D3 [Concomitant]
     Active Substance: CALCIUM CARBONATE\CHOLECALCIFEROL

REACTIONS (8)
  - Decreased appetite [Recovered/Resolved]
  - Constipation [Recovered/Resolved]
  - Nausea [Recovered/Resolved]
  - Vomiting [Recovered/Resolved]
  - Weight decreased [Not Recovered/Not Resolved]
  - Fatigue [Not Recovered/Not Resolved]
  - Abdominal pain upper [Recovered/Resolved]
  - Vertigo [Recovered/Resolved]

NARRATIVE: CASE EVENT DATE: 20191210
